FAERS Safety Report 24856491 (Version 1)
Quarter: 2025Q1

REPORT INFORMATION
  Report Type: Spontaneous
  Country: US (occurrence: None)
  Receive Date: 20250116
  Receipt Date: 20250116
  Transmission Date: 20250408
  Serious: Yes (Other)
  Sender: FDA-CTU
  Company Number: None

PATIENT
  Age: 49 Year
  Sex: Male
  Weight: 83.25 kg

DRUGS (1)
  1. FINASTERIDE\MINOXIDIL [Suspect]
     Active Substance: FINASTERIDE\MINOXIDIL
     Indication: Alopecia
     Dosage: OTHER QUANTITY : 1 SPRAY(S);?FREQUENCY : DAILY;?
     Route: 061

REACTIONS (4)
  - Headache [None]
  - Depression [None]
  - Anxiety [None]
  - Loss of libido [None]

NARRATIVE: CASE EVENT DATE: 20241215
